FAERS Safety Report 24837353 (Version 1)
Quarter: 2025Q1

REPORT INFORMATION
  Report Type: Spontaneous
  Country: IN (occurrence: IN)
  Receive Date: 20250113
  Receipt Date: 20250113
  Transmission Date: 20250409
  Serious: Yes (Death, Other)
  Sender: PFIZER
  Company Number: IN-PFIZER INC-PV202500001572

PATIENT

DRUGS (2)
  1. TRANEXAMIC ACID [Suspect]
     Active Substance: TRANEXAMIC ACID
     Route: 064
  2. BUPIVACAINE [Suspect]
     Active Substance: BUPIVACAINE

REACTIONS (4)
  - Wrong product administered [Fatal]
  - Product packaging confusion [Fatal]
  - Maternal exposure during pregnancy [Fatal]
  - Death [Fatal]
